FAERS Safety Report 8760314 (Version 1)
Quarter: 2012Q4

REPORT INFORMATION
  Report Type: Spontaneous
  Country: US (occurrence: None)
  Receive Date: 20120829
  Receipt Date: 20120829
  Transmission Date: 20130627
  Serious: No
  Sender: FDA-Public Use
  Company Number: None

PATIENT
  Age: 47 Year
  Sex: Female
  Weight: 74.84 kg

DRUGS (1)
  1. EQUATE COMPLETE ONE TABLET DAILY [Suspect]
     Dates: start: 20120601, end: 20120615

REACTIONS (4)
  - Throat irritation [None]
  - Dysphonia [None]
  - Thyroid disorder [None]
  - Discomfort [None]
